FAERS Safety Report 25145069 (Version 1)
Quarter: 2025Q2

REPORT INFORMATION
  Report Type: Spontaneous
  Country: CN (occurrence: CN)
  Receive Date: 20250401
  Receipt Date: 20250401
  Transmission Date: 20250716
  Serious: Yes (Other)
  Sender: ROCHE
  Company Number: CN-ROCHE-10000245812

PATIENT
  Age: 50 Year
  Sex: Female
  Weight: 61 kg

DRUGS (8)
  1. PERTUZUMAB [Suspect]
     Active Substance: PERTUZUMAB
     Indication: Breast mass
     Route: 042
     Dates: start: 20250116, end: 20250116
  2. TRASTUZUMAB [Suspect]
     Active Substance: TRASTUZUMAB
     Indication: Breast mass
     Route: 042
     Dates: start: 20250116, end: 20250116
  3. DOCETAXEL [Suspect]
     Active Substance: DOCETAXEL
     Indication: Breast mass
     Route: 042
     Dates: start: 20250117, end: 20250117
  4. CARBOPLATIN [Suspect]
     Active Substance: CARBOPLATIN
     Indication: Breast mass
     Route: 042
     Dates: start: 20250117, end: 20250117
  5. SODIUM CHLORIDE [Concomitant]
     Active Substance: SODIUM CHLORIDE
     Dosage: SOLVENT
     Route: 042
     Dates: start: 20250116, end: 20250316
  6. SODIUM CHLORIDE [Concomitant]
     Active Substance: SODIUM CHLORIDE
     Dosage: SOLVENT
     Route: 042
     Dates: start: 20250117, end: 20250317
  7. SODIUM CHLORIDE [Concomitant]
     Active Substance: SODIUM CHLORIDE
     Dosage: SOLVENT
     Route: 042
     Dates: start: 20250116, end: 20250116
  8. DEXTROSE [Concomitant]
     Active Substance: DEXTROSE MONOHYDRATE
     Dosage: SOLVENT
     Route: 042
     Dates: start: 20250117, end: 20250117

REACTIONS (1)
  - Myelosuppression [Recovering/Resolving]

NARRATIVE: CASE EVENT DATE: 20250213
